FAERS Safety Report 23219645 (Version 1)
Quarter: 2023Q4

REPORT INFORMATION
  Report Type: Spontaneous
  Country: US (occurrence: US)
  Receive Date: 20231122
  Receipt Date: 20231122
  Transmission Date: 20240109
  Serious: No
  Sender: FDA-Public Use
  Company Number: US-AVADEL CNS PHARMACEUTICALS, LLC-2023AVA00226

PATIENT
  Age: 50 Year
  Sex: Female

DRUGS (1)
  1. LUMRYZ [Suspect]
     Active Substance: SODIUM OXYBATE
     Dosage: 4.5 MG, 1X/DAY AT HS
     Route: 048
     Dates: start: 202309

REACTIONS (4)
  - Musculoskeletal chest pain [Not Recovered/Not Resolved]
  - Back pain [Recovering/Resolving]
  - Middle insomnia [Unknown]
  - Chest pain [Recovering/Resolving]

NARRATIVE: CASE EVENT DATE: 20230901
